FAERS Safety Report 9891626 (Version 2)
Quarter: 2014Q1

REPORT INFORMATION
  Report Type: Spontaneous
  Country: BE (occurrence: BE)
  Receive Date: 20140212
  Receipt Date: 20140305
  Transmission Date: 20141002
  Serious: Yes (Other)
  Sender: FDA-Public Use
  Company Number: BE-PFIZER INC-2014036384

PATIENT
  Age: 25 Year
  Sex: Female

DRUGS (2)
  1. DEPO-PROVERA [Suspect]
     Indication: CONTRACEPTION
     Dosage: 150 MG, EVERY 3 MONTHS
     Route: 030
     Dates: start: 2008, end: 20140120
  2. DEPO-PROVERA [Suspect]
     Indication: DYSMENORRHOEA

REACTIONS (1)
  - Injection site atrophy [Recovered/Resolved with Sequelae]
